FAERS Safety Report 4708469-X (Version None)
Quarter: 2005Q3

REPORT INFORMATION
  Report Type: 
  Country: None (occurrence: None)
  Receive Date: 20050707
  Receipt Date: 20050627
  Transmission Date: 20060218
  Serious: Yes (Other)
  Sender: FDA-Public Use
  Company Number: FR-SANOFI-SYNTHELABO-A02200501710

PATIENT
  Age: 92 Year
  Sex: Female

DRUGS (1)
  1. PLAVIX [Suspect]
     Indication: MYOCARDIAL ISCHAEMIA
     Dosage: UNK
     Route: 048

REACTIONS (3)
  - ARTERIAL THROMBOSIS LIMB [None]
  - COLONIC POLYP [None]
  - POST PROCEDURAL COMPLICATION [None]
